FAERS Safety Report 6950089-0 (Version None)
Quarter: 2010Q3

REPORT INFORMATION
  Report Type: 
  Country: None (occurrence: None)
  Receive Date: 20100828
  Receipt Date: 20100414
  Transmission Date: 20110219
  Serious: No
  Sender: FDA-Public Use
  Company Number: US-ABBOTT-07P-163-0378519-00

PATIENT
  Sex: Female
  Weight: 68.1 kg

DRUGS (4)
  1. NIASPAN [Suspect]
     Indication: BLOOD TRIGLYCERIDES INCREASED
     Route: 048
     Dates: start: 20040101, end: 20070501
  2. NIASPAN [Suspect]
     Dosage: COATED
     Route: 048
     Dates: start: 20070501
  3. NEXIUM [Interacting]
     Indication: GASTROOESOPHAGEAL REFLUX DISEASE
  4. LOVASTATIN [Concomitant]
     Indication: PRODUCT USED FOR UNKNOWN INDICATION
     Route: 048
     Dates: start: 20060101

REACTIONS (6)
  - BLOOD GLUCOSE INCREASED [None]
  - BLOOD TRIGLYCERIDES INCREASED [None]
  - DRUG INEFFECTIVE [None]
  - DRUG INTERACTION [None]
  - HOT FLUSH [None]
  - WRONG TECHNIQUE IN DRUG USAGE PROCESS [None]
